FAERS Safety Report 6665889-4 (Version None)
Quarter: 2010Q2

REPORT INFORMATION
  Report Type: 
  Country: None (occurrence: None)
  Receive Date: 20100402
  Receipt Date: 20100323
  Transmission Date: 20101027
  Serious: Yes (Death, Other)
  Sender: FDA-Public Use
  Company Number: NL-ROCHE-693729

PATIENT
  Age: 64 Year
  Sex: Male

DRUGS (6)
  1. AVASTIN [Suspect]
     Indication: COLON CANCER METASTATIC
     Route: 042
     Dates: start: 20050101, end: 20060201
  2. FLUOROURACIL [Concomitant]
     Indication: COLON CANCER METASTATIC
     Dates: start: 20050101
  3. FLUOROURACIL [Concomitant]
  4. FOLIC ACID [Concomitant]
     Indication: COLON CANCER METASTATIC
     Dates: start: 20050101
  5. FOLIC ACID [Concomitant]
  6. IRINOTECAN HCL [Concomitant]
     Indication: COLON CANCER METASTATIC
     Dates: start: 20050101

REACTIONS (4)
  - FATIGUE [None]
  - MALIGNANT NEOPLASM PROGRESSION [None]
  - STAPHYLOCOCCAL INFECTION [None]
  - WOUND DEHISCENCE [None]
